FAERS Safety Report 18248181 (Version 1)
Quarter: 2020Q3

REPORT INFORMATION
  Report Type: Spontaneous
  Country: US (occurrence: US)
  Receive Date: 20200909
  Receipt Date: 20200909
  Transmission Date: 20201103
  Serious: No
  Sender: FDA-Public Use
  Company Number: US-BAYER-2020-191175

PATIENT
  Sex: Female

DRUGS (5)
  1. MIRALAX [Suspect]
     Active Substance: POLYETHYLENE GLYCOL 3350
     Dosage: 1 DF, QD
     Route: 048
     Dates: start: 20200831, end: 20200908
  2. VITAMINS NOS [Concomitant]
     Active Substance: VITAMINS
  3. MAGNESIUM [Concomitant]
     Active Substance: MAGNESIUM
  4. COLACE [Concomitant]
     Active Substance: DOCUSATE SODIUM
  5. VITAMIN D3 [Concomitant]
     Active Substance: CHOLECALCIFEROL

REACTIONS (7)
  - Discomfort [None]
  - Flatulence [Unknown]
  - Abdominal pain [Unknown]
  - Abdominal distension [Unknown]
  - Muscle spasms [Unknown]
  - Abnormal faeces [Unknown]
  - Dyschezia [Unknown]
